FAERS Safety Report 17992220 (Version 6)
Quarter: 2024Q4

REPORT INFORMATION
  Report Type: Spontaneous
  Country: HR (occurrence: HR)
  Receive Date: 20200708
  Receipt Date: 20241126
  Transmission Date: 20250114
  Serious: Yes (Hospitalization, Other)
  Sender: CELLTRION
  Company Number: HR-CELLTRION INC.-2020HR023906

PATIENT

DRUGS (11)
  1. RITUXIMAB [Suspect]
     Active Substance: RITUXIMAB
     Indication: Chronic lymphocytic leukaemia
     Dosage: UNK
     Route: 065
     Dates: start: 201909
  2. IMBRUVICA [Suspect]
     Active Substance: IBRUTINIB
     Indication: Chronic lymphocytic leukaemia
     Dosage: UNK
     Route: 048
     Dates: start: 201906, end: 201909
  3. VENETOCLAX [Suspect]
     Active Substance: VENETOCLAX
     Indication: Chronic lymphocytic leukaemia
     Dosage: 400 MG (GRADUAL INCREASE OF DOSE ACCORDING TO DOSING PROTOCOL UP TO 400 MG)
     Route: 048
     Dates: start: 201909, end: 201911
  4. VENETOCLAX [Suspect]
     Active Substance: VENETOCLAX
     Dosage: 400 MG (GRADUAL INCREASE OF DOSE ACCORDING TO DOSING PROTOCOL UP TO 400 MG)
     Route: 048
     Dates: start: 201909, end: 201911
  5. VENETOCLAX [Suspect]
     Active Substance: VENETOCLAX
     Dosage: 400 MG (GRADUAL INCREASE OF DOSE ACCORDING TO DOSING PROTOCOL UP TO 400 MG)
     Route: 048
     Dates: start: 201909, end: 201911
  6. VENETOCLAX [Suspect]
     Active Substance: VENETOCLAX
     Dosage: 200 MG
     Route: 048
     Dates: start: 201911, end: 202001
  7. VENETOCLAX [Suspect]
     Active Substance: VENETOCLAX
     Dosage: 200 MG
     Route: 048
     Dates: start: 201911, end: 202001
  8. VENETOCLAX [Suspect]
     Active Substance: VENETOCLAX
     Dosage: 200 MG
     Route: 048
     Dates: start: 201911, end: 202001
  9. VENETOCLAX [Suspect]
     Active Substance: VENETOCLAX
     Dosage: 100 MG
     Route: 048
     Dates: start: 202001
  10. VENETOCLAX [Suspect]
     Active Substance: VENETOCLAX
     Dosage: 100 MG
     Route: 048
     Dates: start: 202001
  11. VENETOCLAX [Suspect]
     Active Substance: VENETOCLAX
     Dosage: 100 MG
     Route: 048
     Dates: start: 202001

REACTIONS (10)
  - Hypercalcaemia [Unknown]
  - Immunodeficiency [Unknown]
  - Epistaxis [Recovered/Resolved]
  - Renal impairment [Unknown]
  - Granulocytopenia [Unknown]
  - Infection [Unknown]
  - Urinary tract infection [Recovered/Resolved]
  - Respiratory tract infection [Unknown]
  - Anaemia [Unknown]
  - Palpitations [Recovered/Resolved]

NARRATIVE: CASE EVENT DATE: 20190901
